FAERS Safety Report 4832915-4 (Version None)
Quarter: 2005Q4

REPORT INFORMATION
  Report Type: 
  Country: None (occurrence: None)
  Receive Date: 20051121
  Receipt Date: 20050929
  Transmission Date: 20060501
  Serious: Yes (Hospitalization, Disabling, Other)
  Sender: FDA-Public Use
  Company Number: US-MERCK-0510USA00458

PATIENT
  Age: 46 Year
  Sex: Male
  Weight: 80 kg

DRUGS (19)
  1. VIOXX [Suspect]
     Indication: BACK PAIN
     Route: 048
     Dates: start: 20000101, end: 20020401
  2. PRAVACHOL [Concomitant]
     Route: 065
  3. TENORMIN [Concomitant]
     Route: 065
  4. AMITRIPTYLINE HYDROCHLORIDE [Concomitant]
     Route: 065
  5. METHOCARBAMOL [Concomitant]
     Route: 065
  6. RELAFEN [Concomitant]
     Route: 065
  7. ASPIRIN [Concomitant]
     Route: 065
  8. NIASPAN [Concomitant]
     Route: 065
  9. HYDROCODONE HYDROCHLORIDE [Concomitant]
     Route: 065
  10. NITROQUICK [Concomitant]
     Route: 065
  11. NICOTROL [Concomitant]
     Route: 065
  12. ATENOLOL [Concomitant]
     Route: 065
  13. PRILOSEC [Concomitant]
     Route: 065
  14. ISOSORBIDE [Concomitant]
     Route: 065
  15. PROTONIX [Concomitant]
     Route: 065
  16. LIPITOR [Concomitant]
     Route: 065
  17. ENDODAN [Concomitant]
     Route: 065
  18. HYDROCHLOROTHIAZIDE [Concomitant]
     Route: 065
  19. ZANTAC [Concomitant]
     Route: 065

REACTIONS (5)
  - ANGINA UNSTABLE [None]
  - CHEST PAIN [None]
  - LYMPHOCELE [None]
  - MYOCARDIAL INFARCTION [None]
  - PNEUMOTHORAX [None]
